FAERS Safety Report 8220192-6 (Version None)
Quarter: 2012Q1

REPORT INFORMATION
  Report Type: 
  Country: None (occurrence: None)
  Receive Date: 20120320
  Receipt Date: 20120306
  Transmission Date: 20120608
  Serious: Yes (Other)
  Sender: FDA-Public Use
  Company Number: US-BAYER-2012-022519

PATIENT
  Sex: Male

DRUGS (2)
  1. AVELOX [Suspect]
     Dosage: UNK
     Dates: start: 20000101
  2. CIPROFLOXACIN [Suspect]
     Dosage: UNK
     Dates: start: 19980101

REACTIONS (18)
  - TENDON RUPTURE [None]
  - INTERVERTEBRAL DISC DEGENERATION [None]
  - INTERVERTEBRAL DISC PROTRUSION [None]
  - BURNING SENSATION [None]
  - SPINAL CORD COMPRESSION [None]
  - EXOSTOSIS [None]
  - PAIN IN EXTREMITY [None]
  - MUSCLE RUPTURE [None]
  - LUMBAR SPINAL STENOSIS [None]
  - VITREOUS FLOATERS [None]
  - TENDON DISORDER [None]
  - BACK PAIN [None]
  - PARAESTHESIA [None]
  - INTERVERTEBRAL DISC SPACE NARROWING [None]
  - JOINT CREPITATION [None]
  - TENDONITIS [None]
  - NERVE COMPRESSION [None]
  - HYPOAESTHESIA [None]
